FAERS Safety Report 24443742 (Version 2)
Quarter: 2024Q4

REPORT INFORMATION
  Report Type: Report from Study
  Country: US (occurrence: US)
  Receive Date: 20241016
  Receipt Date: 20241017
  Transmission Date: 20250115
  Serious: No
  Sender: ROCHE
  Company Number: US-ROCHE-2219053

PATIENT
  Age: 43 Year
  Sex: Female
  Weight: 70.31 kg

DRUGS (5)
  1. RITUXAN [Suspect]
     Active Substance: RITUXIMAB
     Indication: Multiple sclerosis
     Route: 065
     Dates: start: 2016, end: 201806
  2. OCREVUS [Suspect]
     Active Substance: OCRELIZUMAB
     Indication: Relapsing-remitting multiple sclerosis
     Route: 042
     Dates: start: 20181126
  3. LIDOCAINE [Concomitant]
     Active Substance: LIDOCAINE
     Dosage: AS NEEDED
  4. SPIRONOLACTONE [Concomitant]
     Active Substance: SPIRONOLACTONE
     Route: 048
  5. VITAMIN D2 [Concomitant]
     Active Substance: ERGOCALCIFEROL
     Dosage: 50000 U
     Route: 048

REACTIONS (2)
  - Off label use [Unknown]
  - Upper respiratory tract infection [Recovered/Resolved]
